FAERS Safety Report 5006822-0 (Version None)
Quarter: 2006Q2

REPORT INFORMATION
  Report Type: 
  Country: None (occurrence: None)
  Receive Date: 20060516
  Receipt Date: 20060503
  Transmission Date: 20061013
  Serious: Yes (Life-Threatening, Hospitalization, Other)
  Sender: FDA-Public Use
  Company Number: T200600441

PATIENT
  Age: 37 Year
  Sex: Female

DRUGS (3)
  1. METHADOSE [Suspect]
     Dosage: 100 MG, QD
  2. COCAINE (COCAINE) [Concomitant]
  3. OPIAT (OPIUM ALKALOIDS TOTAL, ATROPINE SULFATE) [Concomitant]

REACTIONS (7)
  - BLOOD MAGNESIUM INCREASED [None]
  - BLOOD POTASSIUM DECREASED [None]
  - DRUG INTERACTION [None]
  - DRUG SCREEN POSITIVE [None]
  - TORSADE DE POINTES [None]
  - VENTRICULAR FIBRILLATION [None]
  - VENTRICULAR TACHYCARDIA [None]
